FAERS Safety Report 8309383-3 (Version None)
Quarter: 2012Q2

REPORT INFORMATION
  Report Type: 
  Country: None (occurrence: None)
  Receive Date: 20120420
  Receipt Date: 20120407
  Transmission Date: 20120825
  Serious: Yes (Hospitalization)
  Sender: FDA-Public Use
  Company Number: 2012AP000981

PATIENT
  Age: 77 Year
  Sex: Female

DRUGS (11)
  1. LEVOFLOXACIN [Suspect]
     Indication: LOBAR PNEUMONIA
     Dosage: 500;750 MG, QD,IV, 1X, PO
     Route: 048
  2. PERINDOPRIL ERBUMINE [Concomitant]
  3. CLOPIDOGREL [Concomitant]
  4. ERYTROPOIETIN (ERYTHROPOIETIN) [Concomitant]
  5. ATORVASTATIN [Concomitant]
  6. CALCITRIOL [Concomitant]
  7. INSULIN (INSULIN) [Concomitant]
  8. AMLODIPINE [Concomitant]
  9. BISOPROLOL FUMARATE [Concomitant]
  10. CALCIUM CARBONATE [Concomitant]
  11. AZITHROMYCIN [Concomitant]

REACTIONS (3)
  - RHABDOMYOLYSIS [None]
  - BLOOD GLUCOSE INCREASED [None]
  - PALLOR [None]
